FAERS Safety Report 24581202 (Version 3)
Quarter: 2024Q4

REPORT INFORMATION
  Report Type: Spontaneous
  Country: US (occurrence: US)
  Receive Date: 20241105
  Receipt Date: 20241211
  Transmission Date: 20250115
  Serious: No
  Sender: IPSEN BIOPHARMACEUTICALS, INC.
  Company Number: US-IPSEN Group, Research and Development-2024-22214

PATIENT
  Age: 86 Year
  Sex: Female
  Weight: 68.49 kg

DRUGS (27)
  1. TAZVERIK [Suspect]
     Active Substance: TAZEMETOSTAT HYDROBROMIDE
     Indication: Follicular lymphoma
     Dosage: 800 MG TWICE DAILY
     Route: 048
     Dates: start: 20241028
  2. TAZVERIK [Suspect]
     Active Substance: TAZEMETOSTAT HYDROBROMIDE
     Route: 048
     Dates: start: 202411
  3. ATORVASTATIN [Concomitant]
     Active Substance: ATORVASTATIN
     Dosage: 1 TAB ORAL DAILY (100 TABS) 3 REFILLS
     Route: 048
  4. PANTOPRAZOLE [Concomitant]
     Active Substance: PANTOPRAZOLE
     Dosage: 1 TABLET ORAL DAILY (30 TABS)
     Route: 048
  5. FAMOTIDINE [Concomitant]
     Active Substance: FAMOTIDINE
     Dosage: 1 TABLET ORAL TWICE DAILY BY MOUTH
     Route: 048
  6. VANCOMYCIN [Concomitant]
     Active Substance: VANCOMYCIN
     Dosage: 125 MG/ 5 ML
     Route: 048
  7. LACTICASEIBACILLUS RHAMNOSUS GG [Concomitant]
     Active Substance: LACTICASEIBACILLUS RHAMNOSUS GG
     Dosage: 1 CAP, ORAL, DAILY (30 CAP)
     Route: 048
  8. IRON\VITAMINS [Concomitant]
     Active Substance: IRON\VITAMINS
     Dosage: 1 CAP, ORAL, DAILY
     Route: 048
  9. DIETARY SUPPLEMENT [Concomitant]
     Active Substance: DIETARY SUPPLEMENT
     Dosage: 1 CAP, ORAL, DAILY
     Route: 048
  10. CHOLECALCIFEROL [Concomitant]
     Active Substance: CHOLECALCIFEROL
     Dosage: CHOLECALCIFEROL 25 MCG (1000 INTL UNITS), 1 CAP, ORAL, DAILY, 3 REFILLS
     Route: 048
  11. SYMBICORT [Concomitant]
     Active Substance: BUDESONIDE\FORMOTEROL FUMARATE DIHYDRATE
     Dosage: 1 PUFF INHALED, BID
     Route: 048
  12. OMEGA-3 POLYUNSATURATED FATTY ACID [Concomitant]
     Dosage: 1 TABLET ORAL, DAILY
     Route: 048
  13. ZINC [Concomitant]
     Active Substance: ZINC
     Dosage: 1 TABLET ORAL, DAILY
     Route: 048
  14. COREG [Concomitant]
     Active Substance: CARVEDILOL
     Dosage: 1 TABLET ORAL, BID (180 TABS)
     Route: 048
  15. ALLEGRA [Concomitant]
     Active Substance: FEXOFENADINE HYDROCHLORIDE
     Dosage: 1 TABLET ORAL, DAILY 90 TABS (ALLEGRA 60 MG), 3 REFILLS
     Route: 048
  16. SINGULAIR [Concomitant]
     Active Substance: MONTELUKAST SODIUM
     Indication: Hypersensitivity
     Dosage: 1 TABLET ORAL, DAILY 90 TABS
     Route: 048
  17. ONDANSETRON [Concomitant]
     Active Substance: ONDANSETRON
     Indication: Nausea
     Dosage: 1 TABLET ORAL (60 TABS), TID, PRN
     Route: 048
     Dates: start: 20241029
  18. ONDANSETRON [Concomitant]
     Active Substance: ONDANSETRON
     Indication: Vomiting
     Dosage: 8 MG IV PUSH
     Route: 042
     Dates: start: 20240814, end: 20240905
  19. TYLENOL EXTRA STRENGTH [Concomitant]
     Active Substance: ACETAMINOPHEN
     Dosage: 12 MG/KG/DOSE 500 MG ORAL, EVERY 4 HOURS, PRN (NOT TO EXCEED 5 DOSE PER DAY)
     Route: 048
  20. TYLENOL EXTRA STRENGTH [Concomitant]
     Active Substance: ACETAMINOPHEN
     Route: 048
     Dates: start: 20240814, end: 20240904
  21. TYLENOL EXTRA STRENGTH [Concomitant]
     Active Substance: ACETAMINOPHEN
     Dates: start: 20241029
  22. MEPERIDINE [Concomitant]
     Active Substance: MEPERIDINE
     Dosage: 25 MG IV PUSH, PRN
     Route: 042
     Dates: start: 20240814, end: 20240905
  23. DIPHENHYDRAMINE [Concomitant]
     Active Substance: DIPHENHYDRAMINE
     Dosage: 25 MG ORAL
     Route: 048
     Dates: start: 20240814, end: 20240904
  24. SODIUM CHLORIDE [Concomitant]
     Active Substance: SODIUM CHLORIDE
     Dosage: PRN
     Route: 042
  25. SODIUM CHLORIDE [Concomitant]
     Active Substance: SODIUM CHLORIDE
     Dates: start: 20240814, end: 20240904
  26. TRUXIMA [Concomitant]
     Active Substance: RITUXIMAB-ABBS
     Dosage: PRN
     Route: 042
     Dates: start: 20240814, end: 20240904
  27. FENTANYL [Concomitant]
     Active Substance: FENTANYL
     Route: 042
     Dates: start: 20241029

REACTIONS (11)
  - Asthenia [Recovering/Resolving]
  - Fall [Recovering/Resolving]
  - Wrist fracture [Recovering/Resolving]
  - Eye contusion [Recovering/Resolving]
  - Nausea [Recovering/Resolving]
  - Illness [Unknown]
  - Initial insomnia [Not Recovered/Not Resolved]
  - Asthenia [Unknown]
  - Tremor [Unknown]
  - Vomiting [Unknown]
  - Retching [Unknown]

NARRATIVE: CASE EVENT DATE: 20241029
